FAERS Safety Report 9738950 (Version 2)
Quarter: 2013Q4

REPORT INFORMATION
  Report Type: Spontaneous
  Country: SE (occurrence: SE)
  Receive Date: 20131209
  Receipt Date: 20131209
  Transmission Date: 20140711
  Serious: Yes (Disabling)
  Sender: FDA-Public Use
  Company Number: PHHY2013SE111106

PATIENT
  Age: 65 Year
  Sex: Female

DRUGS (1)
  1. ONBREZ [Suspect]
     Dosage: 300 UG, UNK
     Route: 048
     Dates: start: 20130702, end: 20131016

REACTIONS (2)
  - Tremor [Unknown]
  - Tachycardia [Unknown]
